FAERS Safety Report 7516792-9 (Version None)
Quarter: 2011Q2

REPORT INFORMATION
  Report Type: 
  Country: None (occurrence: None)
  Receive Date: 20110429
  Receipt Date: 20110317
  Transmission Date: 20111010
  Serious: Yes (Other)
  Sender: FDA-Public Use
  Company Number: SPV1-2010-02236

PATIENT
  Age: 15 Year
  Sex: Male
  Weight: 45.4 kg

DRUGS (2)
  1. INTUNIV [Suspect]
     Indication: ATTENTION DEFICIT/HYPERACTIVITY DISORDER
     Dosage: 3 MG, 1X/DAY:QD
     Dates: start: 20101201
  2. VYVANSE [Concomitant]

REACTIONS (2)
  - CONVULSION [None]
  - WRONG TECHNIQUE IN DRUG USAGE PROCESS [None]
